FAERS Safety Report 23402676 (Version 3)
Quarter: 2024Q2

REPORT INFORMATION
  Report Type: Spontaneous
  Country: US (occurrence: US)
  Receive Date: 20240115
  Receipt Date: 20240417
  Transmission Date: 20240716
  Serious: No
  Sender: FDA-Public Use
  Company Number: US-Calliditas-2024CAL00049

PATIENT
  Age: 52 Year
  Sex: Female

DRUGS (1)
  1. TARPEYO [Suspect]
     Active Substance: BUDESONIDE
     Indication: Haematuria
     Dosage: 16MG (4MG CAPSULES) ONCE DAILY
     Route: 048
     Dates: start: 20231027

REACTIONS (5)
  - Vomiting [Unknown]
  - Product residue present [Unknown]
  - Swelling face [Unknown]
  - Peripheral swelling [Unknown]
  - Headache [Unknown]
